FAERS Safety Report 4268985-4 (Version None)
Quarter: 2004Q1

REPORT INFORMATION
  Report Type: 
  Country: None (occurrence: None)
  Receive Date: 20040108
  Receipt Date: 20031229
  Transmission Date: 20041129
  Serious: Yes (Other)
  Sender: FDA-Public Use
  Company Number: 200320734US

PATIENT
  Age: 59 Year
  Sex: Male
  Weight: 104.5 kg

DRUGS (9)
  1. LANTUS [Suspect]
     Indication: DIABETES MELLITUS NON-INSULIN-DEPENDENT
     Dosage: 10-15 U HS
     Dates: start: 20021001
  2. LANTUS [Suspect]
     Indication: DIABETES MELLITUS NON-INSULIN-DEPENDENT
     Dosage: 50 U HS
  3. LANTUS [Suspect]
     Indication: DIABETES MELLITUS NON-INSULIN-DEPENDENT
     Dosage: 45 U HS
  4. METFORMIN HYDROCHLORIDE (GLUCOPHAGE - SLOW RELEASE) [Concomitant]
  5. AMARYL [Concomitant]
  6. FLUVOXAMINE MALEATE (LUVOX) [Concomitant]
  7. ALPRAZOLAM [Concomitant]
  8. METHYLPHENIDATE HYDROCHLORIDE (RITALIN) [Concomitant]
  9. AMITRIPTYLINE [Concomitant]

REACTIONS (2)
  - BLOOD GLUCOSE FLUCTUATION [None]
  - WEIGHT INCREASED [None]
